FAERS Safety Report 9288333 (Version 1)
Quarter: 2013Q2

REPORT INFORMATION
  Report Type: Spontaneous
  Country: FR (occurrence: FR)
  Receive Date: 20130514
  Receipt Date: 20130514
  Transmission Date: 20140414
  Serious: Yes (Other)
  Sender: FDA-Public Use
  Company Number: FR-MYLANLABS-2013S1009584

PATIENT
  Age: 11 Year
  Sex: Female
  Weight: 42 kg

DRUGS (4)
  1. ACICLOVIR [Suspect]
     Indication: ANTIVIRAL PROPHYLAXIS
     Route: 042
     Dates: start: 20130315, end: 20130318
  2. CLAFORAN [Concomitant]
  3. ROCEPHINE [Concomitant]
  4. PERFALGAN [Concomitant]

REACTIONS (3)
  - Wrong technique in drug usage process [Recovered/Resolved]
  - Infusion site extravasation [Recovered/Resolved]
  - Skin ulcer [Recovered/Resolved]
